FAERS Safety Report 10242619 (Version 2)
Quarter: 2014Q2

REPORT INFORMATION
  Report Type: Spontaneous
  Country: FR (occurrence: FR)
  Receive Date: 20140617
  Receipt Date: 20140620
  Transmission Date: 20141212
  Serious: Yes (Hospitalization)
  Sender: FDA-Public Use
  Company Number: FR-EISAI INC-E7389-05177-SPO-FR

PATIENT
  Age: 52 Year
  Sex: Female

DRUGS (11)
  1. HALAVEN [Suspect]
     Indication: BREAST CANCER
     Dosage: 2.354 MG
     Route: 041
     Dates: start: 20140310, end: 20140310
  2. HALAVEN [Suspect]
     Dosage: 2.376 MG
     Route: 041
     Dates: start: 20140318, end: 20140318
  3. HALAVEN [Suspect]
     Dosage: 2.279 MG
     Route: 041
     Dates: start: 20140401, end: 20140401
  4. HALAVEN [Suspect]
     Dosage: 2.288 MG
     Route: 041
     Dates: start: 20140408, end: 20140408
  5. DOLIPRANE [Concomitant]
     Indication: PAIN
     Dosage: UNKNOWN
  6. EDUCTYL [Concomitant]
     Indication: CONSTIPATION
     Dosage: UNKNOWN
     Route: 054
  7. MOVICOL [Concomitant]
     Indication: CONSTIPATION
     Dosage: UNKNOWN
     Route: 048
  8. DURAGESIC [Concomitant]
     Indication: PAIN
     Dosage: UNKNOWN
     Route: 062
  9. ACTISKENAN [Concomitant]
     Indication: PAIN
     Dosage: UNKNOWN
     Route: 048
  10. ATARAX [Concomitant]
     Indication: INSOMNIA
     Dosage: UNKNOWN
     Route: 048
  11. CALCIDOSE [Concomitant]
     Indication: PRODUCT USED FOR UNKNOWN INDICATION
     Dosage: 500 MG/DAY
     Route: 048

REACTIONS (3)
  - Hepatic pain [Unknown]
  - Interstitial lung disease [Recovering/Resolving]
  - Respiratory distress [Recovering/Resolving]
